FAERS Safety Report 24061387 (Version 2)
Quarter: 2024Q3

REPORT INFORMATION
  Report Type: Report from Study
  Country: US (occurrence: US)
  Receive Date: 20240708
  Receipt Date: 20240718
  Transmission Date: 20241016
  Serious: Yes (Hospitalization, Other)
  Sender: APELLIS PHARMACEUTICALS
  Company Number: US-APELLIS-2024-APL-0000313

PATIENT

DRUGS (3)
  1. PEGCETACOPLAN [Suspect]
     Active Substance: PEGCETACOPLAN
     Indication: Paroxysmal nocturnal haemoglobinuria
     Dosage: 1080MG, TWICE WEEKLY
     Route: 058
     Dates: start: 20220712
  2. PEGCETACOPLAN [Suspect]
     Active Substance: PEGCETACOPLAN
     Dosage: 1080MG, THREE TIMES WEEKLY
     Route: 058
  3. PROMACTA [Concomitant]
     Active Substance: ELTROMBOPAG OLAMINE
     Indication: Product used for unknown indication
     Dosage: 75MG DAILY

REACTIONS (12)
  - Paroxysmal nocturnal haemoglobinuria [Recovering/Resolving]
  - Weight decreased [Recovering/Resolving]
  - Renal function test abnormal [Recovering/Resolving]
  - Haemoglobin decreased [Recovered/Resolved]
  - Visual impairment [Unknown]
  - Platelet count decreased [Recovered/Resolved]
  - Insomnia [Unknown]
  - Vitamin B12 decreased [Unknown]
  - Asthenia [Unknown]
  - Fatigue [Unknown]
  - Off label use [Unknown]
  - Fatigue [Not Recovered/Not Resolved]

NARRATIVE: CASE EVENT DATE: 20240705
